FAERS Safety Report 5299547-8 (Version None)
Quarter: 2007Q2

REPORT INFORMATION
  Report Type: 
  Country: None (occurrence: None)
  Receive Date: 20070417
  Receipt Date: 20070403
  Transmission Date: 20071010
  Serious: Yes (Death, Hospitalization)
  Sender: FDA-Public Use
  Company Number: FRWYE332203APR07

PATIENT
  Age: 59 Year
  Sex: Male

DRUGS (3)
  1. ENBREL [Suspect]
     Indication: PSORIATIC ARTHROPATHY
     Dosage: 50 MG TOTAL WEEKLY
     Route: 058
     Dates: end: 20070226
  2. HEPARIN [Suspect]
     Dosage: UNKNOWN
  3. NOVATREX [Suspect]
     Indication: PSORIATIC ARTHROPATHY
     Dosage: UNKNOWN
     Route: 048
     Dates: end: 20070226

REACTIONS (11)
  - ANURIA [None]
  - BLOOD PRESSURE ABNORMAL [None]
  - BRAIN NATRIURETIC PEPTIDE INCREASED [None]
  - HEPARIN-INDUCED THROMBOCYTOPENIA [None]
  - HYPOXIA [None]
  - JUGULAR VEIN THROMBOSIS [None]
  - METABOLIC ACIDOSIS [None]
  - ORTHOPNOEA [None]
  - PNEUMONIA LEGIONELLA [None]
  - WEIGHT INCREASED [None]
  - WHITE CLOT SYNDROME [None]
